FAERS Safety Report 11869405 (Version 1)
Quarter: 2015Q4

REPORT INFORMATION
  Report Type: Spontaneous
  Country: US (occurrence: US)
  Receive Date: 20151227
  Receipt Date: 20151227
  Transmission Date: 20160305
  Serious: Yes (Life-Threatening, Hospitalization, Other)
  Sender: FDA-Public Use
  Company Number: US-GLAXOSMITHKLINE-US2015GSK121785

PATIENT
  Age: 48 Year
  Sex: Female

DRUGS (10)
  1. NEURONTIN CAPSULE [Concomitant]
     Indication: PRODUCT USED FOR UNKNOWN INDICATION
     Dosage: 400 MG, TID
     Route: 048
  2. FLEXERIL [Concomitant]
     Active Substance: CYCLOBENZAPRINE HYDROCHLORIDE
     Indication: PRODUCT USED FOR UNKNOWN INDICATION
     Dosage: 10 MG, QD
     Route: 048
  3. OXYCODONE [Concomitant]
     Active Substance: OXYCODONE
     Indication: PRODUCT USED FOR UNKNOWN INDICATION
     Dosage: 10 MG, TID
     Route: 048
  4. PROTONIX [Concomitant]
     Active Substance: PANTOPRAZOLE SODIUM
     Indication: PRODUCT USED FOR UNKNOWN INDICATION
     Dosage: 40 MG, QD BEFORE BREAKFAST
  5. TUMS [Suspect]
     Active Substance: CALCIUM CARBONATE
     Indication: NAUSEA
  6. AUGMENTIN [Concomitant]
     Active Substance: AMOXICILLIN\CLAVULANATE POTASSIUM
     Indication: PRODUCT USED FOR UNKNOWN INDICATION
     Dosage: 875 MG, BID
  7. FLONASE [Concomitant]
     Active Substance: FLUTICASONE PROPIONATE
     Indication: PRODUCT USED FOR UNKNOWN INDICATION
     Dosage: UNK, BID
  8. TUMS [Suspect]
     Active Substance: CALCIUM CARBONATE
     Indication: ABDOMINAL DISCOMFORT
  9. TUMS [Suspect]
     Active Substance: CALCIUM CARBONATE
     Indication: DYSPEPSIA
     Dosage: 2 DF, TID WITH MEALS
     Dates: start: 201409
  10. XANAX [Concomitant]
     Active Substance: ALPRAZOLAM
     Indication: INSOMNIA
     Dosage: 1 AT BEDTIME

REACTIONS (47)
  - Dehydration [Unknown]
  - Lethargy [Unknown]
  - Amnesia [Not Recovered/Not Resolved]
  - Drug ineffective [Unknown]
  - Sinusitis [Unknown]
  - Ear infection [Unknown]
  - Dementia [Not Recovered/Not Resolved]
  - Asthenia [Unknown]
  - Mental status changes [Recovering/Resolving]
  - Cognitive disorder [Not Recovered/Not Resolved]
  - Anxiety [Unknown]
  - Constipation [Unknown]
  - Abnormal behaviour [Unknown]
  - Self esteem decreased [Unknown]
  - Pyrexia [Unknown]
  - Mental impairment [Not Recovered/Not Resolved]
  - Renal impairment [Unknown]
  - Dyspepsia [Unknown]
  - Blood thyroid stimulating hormone decreased [Unknown]
  - Acute kidney injury [Recovered/Resolved]
  - Encephalopathy [Recovered/Resolved]
  - Confusional state [Not Recovered/Not Resolved]
  - Myalgia [Unknown]
  - Muscle contracture [Unknown]
  - Nausea [Unknown]
  - Abdominal discomfort [Recovered/Resolved]
  - Hallucination [Unknown]
  - Ear pain [Unknown]
  - Radiculopathy [Unknown]
  - Mental status changes [Not Recovered/Not Resolved]
  - Hypercalcaemia [Not Recovered/Not Resolved]
  - Disorientation [Unknown]
  - Loss of employment [Not Recovered/Not Resolved]
  - Emotional distress [Not Recovered/Not Resolved]
  - Sleep disorder [Unknown]
  - Nasal congestion [Unknown]
  - Adverse drug reaction [Unknown]
  - Muscle spasms [Unknown]
  - Fatigue [Unknown]
  - Cough [Unknown]
  - Depressed level of consciousness [Unknown]
  - Bone pain [Unknown]
  - Muscle twitching [Unknown]
  - Adverse event [Unknown]
  - Urinary incontinence [Unknown]
  - Back pain [Unknown]
  - Sciatica [Unknown]

NARRATIVE: CASE EVENT DATE: 201410
